FAERS Safety Report 15330086 (Version 1)
Quarter: 2018Q3

REPORT INFORMATION
  Report Type: Spontaneous
  Country: US (occurrence: US)
  Receive Date: 20180824
  Receipt Date: 20180824
  Transmission Date: 20181010
  Serious: Yes (Hospitalization)
  Sender: FDA-Public Use
  Company Number: None

PATIENT
  Age: 66 Year
  Sex: Female
  Weight: 72 kg

DRUGS (1)
  1. IRON SUCROSE [Suspect]
     Active Substance: IRON SUCROSE
     Indication: IRON DEFICIENCY
     Route: 042
     Dates: start: 20180821, end: 20180821

REACTIONS (5)
  - Muscle spasms [None]
  - Hyperhidrosis [None]
  - Dyspnoea [None]
  - Nausea [None]
  - Retching [None]

NARRATIVE: CASE EVENT DATE: 20180821
